FAERS Safety Report 19926834 (Version 1)
Quarter: 2021Q4

REPORT INFORMATION
  Report Type: Spontaneous
  Country: GB (occurrence: GB)
  Receive Date: 20211007
  Receipt Date: 20211007
  Transmission Date: 20220303
  Serious: Yes (Congenital Anomaly)
  Sender: FDA-Public Use
  Company Number: GB-ABBVIE-21K-056-4108399-00

PATIENT
  Sex: Female
  Weight: 2 kg

DRUGS (5)
  1. EPILIM [Suspect]
     Active Substance: VALPROATE SODIUM
     Indication: Maternal exposure timing unspecified
     Route: 064
  2. AMISULPRIDE [Suspect]
     Active Substance: AMISULPRIDE
     Indication: Maternal exposure timing unspecified
     Route: 064
  3. QUETIAPINE FUMARATE [Suspect]
     Active Substance: QUETIAPINE FUMARATE
     Indication: Maternal exposure timing unspecified
     Route: 064
  4. LANSOPRAZOLE [Suspect]
     Active Substance: LANSOPRAZOLE
     Indication: Maternal exposure timing unspecified
     Route: 064
  5. PROCYCLIDINE [Suspect]
     Active Substance: PROCYCLIDINE
     Indication: Maternal exposure timing unspecified
     Route: 064

REACTIONS (8)
  - Delayed visual maturation [Unknown]
  - Haemangioma of liver [Unknown]
  - Ovarian cyst [Unknown]
  - Ventricular hypertrophy [Unknown]
  - Adrenal cyst [Unknown]
  - Learning disorder [Unknown]
  - Premature baby [Unknown]
  - Foetal exposure during pregnancy [Unknown]
